FAERS Safety Report 6347461-9 (Version None)
Quarter: 2009Q3

REPORT INFORMATION
  Report Type: 
  Country: None (occurrence: None)
  Receive Date: 20090910
  Receipt Date: 20090904
  Transmission Date: 20100115
  Serious: Yes (Hospitalization, Other)
  Sender: FDA-Public Use
  Company Number: AU-ROXANE LABORATORIES, INC.-2009-RO-00910RO

PATIENT
  Age: 45 Year
  Sex: Male

DRUGS (7)
  1. DIGOXIN [Suspect]
  2. FUROSEMIDE [Suspect]
     Indication: DIURETIC THERAPY
  3. LISINOPRIL [Suspect]
     Indication: DRUG THERAPY
  4. LISINOPRIL [Suspect]
     Dosage: 40 MG
  5. SPIRONOLACTONE [Suspect]
  6. CARVEDILOL [Suspect]
     Indication: DRUG THERAPY
  7. CARVEDILOL [Suspect]
     Dosage: 50 MG

REACTIONS (5)
  - BRAIN NATRIURETIC PEPTIDE INCREASED [None]
  - DRUG INEFFECTIVE [None]
  - HYPERLIPIDAEMIA [None]
  - LEFT VENTRICULAR DYSFUNCTION [None]
  - TYPE 2 DIABETES MELLITUS [None]
